FAERS Safety Report 15126908 (Version 1)
Quarter: 2018Q3

REPORT INFORMATION
  Report Type: Spontaneous
  Country: US (occurrence: US)
  Receive Date: 20180710
  Receipt Date: 20180710
  Transmission Date: 20181010
  Serious: No
  Sender: FDA-Public Use
  Company Number: US-PERRIGO-18US005654

PATIENT
  Age: 49 Year
  Sex: Female
  Weight: 67.12 kg

DRUGS (1)
  1. MICONAZOLE 1 [Suspect]
     Active Substance: MICONAZOLE NITRATE
     Indication: VULVOVAGINAL MYCOTIC INFECTION
     Dosage: 1200 MG, SINGLE
     Route: 067
     Dates: start: 20180514, end: 20180514

REACTIONS (4)
  - Vulvovaginal discomfort [Recovered/Resolved]
  - Drug ineffective [Unknown]
  - Hypersensitivity [Recovered/Resolved]
  - Vulvovaginal swelling [Recovered/Resolved]

NARRATIVE: CASE EVENT DATE: 20180514
